FAERS Safety Report 20567174 (Version 1)
Quarter: 2022Q1

REPORT INFORMATION
  Report Type: Spontaneous
  Country: SG (occurrence: None)
  Receive Date: 20220308
  Receipt Date: 20220308
  Transmission Date: 20220423
  Serious: Yes (Other)
  Sender: FDA-Public Use
  Company Number: SG-ROCHE-2943699

PATIENT
  Age: 82 Year
  Sex: Female

DRUGS (1)
  1. AVASTIN [Suspect]
     Active Substance: BEVACIZUMAB
     Indication: Colorectal cancer
     Route: 065

REACTIONS (5)
  - Asthenia [Unknown]
  - Investigation abnormal [Unknown]
  - Metastatic neoplasm [Unknown]
  - Drug ineffective [Unknown]
  - Cough [Unknown]
